FAERS Safety Report 6476496-0 (Version None)
Quarter: 2009Q4

REPORT INFORMATION
  Report Type: 
  Country: None (occurrence: None)
  Receive Date: 20091207
  Receipt Date: 20091126
  Transmission Date: 20100525
  Serious: Yes (Death)
  Sender: FDA-Public Use
  Company Number: JP-JNJFOC-20091200155

PATIENT
  Sex: Male
  Weight: 45 kg

DRUGS (18)
  1. REMICADE [Suspect]
     Route: 042
  2. REMICADE [Suspect]
     Dosage: INFUSION 9-14 ON UNSPECIFIED DATES
     Route: 042
  3. REMICADE [Suspect]
     Route: 042
  4. REMICADE [Suspect]
     Route: 042
  5. REMICADE [Suspect]
     Route: 042
  6. REMICADE [Suspect]
     Route: 042
  7. REMICADE [Suspect]
     Route: 042
  8. REMICADE [Suspect]
     Route: 042
  9. REMICADE [Suspect]
     Route: 042
  10. REMICADE [Suspect]
     Indication: BEHCET'S SYNDROME
     Route: 042
  11. MEDROL [Suspect]
     Route: 048
  12. MEDROL [Suspect]
     Route: 048
  13. MEDROL [Suspect]
     Indication: BEHCET'S SYNDROME
     Route: 048
  14. NEORAL [Concomitant]
     Indication: BEHCET'S SYNDROME
     Route: 048
  15. MOBIC [Concomitant]
     Indication: BEHCET'S SYNDROME
     Route: 048
  16. ISCOTIN [Concomitant]
     Indication: PROPHYLAXIS
     Route: 048
  17. GASTER D [Concomitant]
     Indication: PROPHYLAXIS
     Route: 048
  18. ROCALTROL [Concomitant]
     Indication: PROPHYLAXIS
     Route: 048

REACTIONS (1)
  - PNEUMOCYSTIS JIROVECI PNEUMONIA [None]
